FAERS Safety Report 4327826-7 (Version None)
Quarter: 2004Q1

REPORT INFORMATION
  Report Type: 
  Country: None (occurrence: None)
  Receive Date: 20040325
  Receipt Date: 20040316
  Transmission Date: 20041129
  Serious: Yes (Hospitalization)
  Sender: FDA-Public Use
  Company Number: JP-JNJFOC-20040204073

PATIENT
  Age: 61 Year
  Sex: Male

DRUGS (12)
  1. OFLOXACIN (OFLOXACIN) TABLETS [Suspect]
     Indication: PERITONITIS
     Dosage: 200 MG, 1 IN 1 DAY, ORAL
     Route: 048
     Dates: start: 20031125, end: 20031203
  2. CEFTAZIDIME PENTAHYDRATE [Suspect]
     Dosage: 1 G, INTRA-PERITONEAL
     Route: 033
     Dates: start: 20031125, end: 20031203
  3. GENTAMINCINE (GENTAMICIN) [Concomitant]
  4. VANCOMYCIN [Concomitant]
  5. PROGRAF [Concomitant]
  6. MEDRO (METHYLPREDNISOLONE) [Concomitant]
  7. METOPROLOL TARTRATE [Concomitant]
  8. LASIX [Concomitant]
  9. ASPIRIN [Concomitant]
  10. EUCALCIC (CALCIUM CARBONATE) [Concomitant]
  11. POTASSIUM CHLORIDE [Concomitant]
  12. FOSAMAX [Concomitant]

REACTIONS (7)
  - ARTERIOSCLEROSIS [None]
  - CEREBRAL ISCHAEMIA [None]
  - CONFUSIONAL STATE [None]
  - CONVULSION [None]
  - DELIRIUM [None]
  - LEUKOENCEPHALOMYELITIS [None]
  - MEMORY IMPAIRMENT [None]
